FAERS Safety Report 9256361 (Version 2)
Quarter: 2013Q2

REPORT INFORMATION
  Report Type: Spontaneous
  Country: BR (occurrence: BR)
  Receive Date: 20130425
  Receipt Date: 20130529
  Transmission Date: 20140414
  Serious: Yes (Hospitalization, Other)
  Sender: FDA-Public Use
  Company Number: BR-009507513-1304BRA013422

PATIENT
  Age: 33 Year
  Sex: Female
  Weight: 73 kg

DRUGS (1)
  1. NUVARING [Suspect]
     Indication: CONTRACEPTION
     Dosage: UNK
     Route: 067
     Dates: start: 201211, end: 20130408

REACTIONS (6)
  - Ectopic pregnancy termination [Unknown]
  - Ectopic pregnancy [Recovered/Resolved]
  - Salpingo-oophorectomy unilateral [Recovering/Resolving]
  - Haemorrhage in pregnancy [Recovered/Resolved]
  - Unintended pregnancy [Recovered/Resolved]
  - Abdominal pain [Unknown]
